FAERS Safety Report 7392787-3 (Version None)
Quarter: 2011Q2

REPORT INFORMATION
  Report Type: 
  Country: None (occurrence: None)
  Receive Date: 20110404
  Receipt Date: 20110325
  Transmission Date: 20111010
  Serious: Yes (Hospitalization)
  Sender: FDA-Public Use
  Company Number: PHHO2011KR05396

PATIENT
  Sex: Female
  Weight: 45.3 kg

DRUGS (2)
  1. AFINITOR [Suspect]
     Indication: METASTATIC RENAL CELL CARCINOMA
     Dosage: 10 MG, QD
     Route: 048
     Dates: start: 20101116, end: 20110324
  2. SUTENT [Suspect]
     Indication: METASTATIC RENAL CELL CARCINOMA
     Dosage: UNKNOWN
     Dates: start: 20100428, end: 20101012

REACTIONS (1)
  - GAMMA-GLUTAMYLTRANSFERASE INCREASED [None]
